FAERS Safety Report 10479158 (Version 2)
Quarter: 2014Q4

REPORT INFORMATION
  Report Type: Spontaneous
  Country: US (occurrence: US)
  Receive Date: 20140926
  Receipt Date: 20141027
  Transmission Date: 20150528
  Serious: Yes (Other)
  Sender: FDA-Public Use
  Company Number: US-PFIZER INC-2014264918

PATIENT
  Age: 61 Year
  Sex: Female
  Weight: 46.26 kg

DRUGS (5)
  1. PHENOBARBITAL. [Concomitant]
     Active Substance: PHENOBARBITAL
     Indication: EPILEPSY
     Dosage: 64.5 MG, 2X/DAY
  2. ZARONTIN [Suspect]
     Active Substance: ETHOSUXIMIDE
     Indication: EPILEPSY
     Dosage: 250 MG, 5X/DAY
     Route: 048
     Dates: start: 1970
  3. DIAZEPAM. [Concomitant]
     Active Substance: DIAZEPAM
     Indication: EPILEPSY
     Dosage: 2 MG, 1X/DAY
  4. LEVOTHYROXINE [Concomitant]
     Active Substance: LEVOTHYROXINE
     Indication: THYROID DISORDER
     Dosage: 50 UG, 1X/DAY
  5. PHENYTOIN. [Concomitant]
     Active Substance: PHENYTOIN
     Indication: EPILEPSY
     Dosage: 100 MG, 4X/DAY

REACTIONS (6)
  - Fall [Unknown]
  - Weight decreased [Unknown]
  - Thyroid disorder [Unknown]
  - Lung neoplasm malignant [Recovered/Resolved]
  - Brain injury [Unknown]
  - Hip fracture [Unknown]

NARRATIVE: CASE EVENT DATE: 2002
